FAERS Safety Report 7627718-1 (Version None)
Quarter: 2011Q3

REPORT INFORMATION
  Report Type: 
  Country: None (occurrence: None)
  Receive Date: 20110721
  Receipt Date: 20100806
  Transmission Date: 20111222
  Serious: Yes (Other)
  Sender: FDA-Public Use
  Company Number: IT-UCBSA-037239

PATIENT

DRUGS (1)
  1. NITROGLYCERIN [Suspect]
     Dosage: UNKNOWN DOSE
     Route: 062

REACTIONS (3)
  - CONFUSIONAL STATE [None]
  - PRESYNCOPE [None]
  - HYPOTENSION [None]
